FAERS Safety Report 7772310-1 (Version None)
Quarter: 2011Q3

REPORT INFORMATION
  Report Type: 
  Country: None (occurrence: None)
  Receive Date: 20110922
  Receipt Date: 20100826
  Transmission Date: 20111222
  Serious: No
  Sender: FDA-Public Use
  Company Number: US-ASTRAZENECA-2007UW25118

PATIENT
  Age: 44 Year
  Sex: Female
  Weight: 91.2 kg

DRUGS (22)
  1. SEROQUEL [Suspect]
     Indication: PSYCHOTIC DISORDER
     Dosage: 25-100 MG
     Route: 048
     Dates: start: 20030418
  2. SEROQUEL [Suspect]
     Indication: DELUSION
     Dosage: 25-100 MG
     Route: 048
     Dates: start: 20030418
  3. ZOCOR [Concomitant]
     Indication: BLOOD CHOLESTEROL
     Route: 048
     Dates: start: 20060201
  4. ZOCOR [Concomitant]
     Route: 048
     Dates: start: 20060213
  5. SEROQUEL [Suspect]
     Indication: ABNORMAL BEHAVIOUR
     Dosage: 25-100 MG
     Route: 048
     Dates: start: 20030418
  6. SEROQUEL [Suspect]
     Indication: DEPRESSION
     Dosage: 25-100 MG
     Route: 048
     Dates: start: 20030418
  7. SEROQUEL [Suspect]
     Dosage: 25-75 MG
     Route: 048
     Dates: start: 20041117, end: 20060526
  8. SEROQUEL [Suspect]
     Dosage: 25-75 MG
     Route: 048
     Dates: start: 20041117, end: 20060526
  9. ABILIFY [Concomitant]
     Dates: start: 20030418
  10. SEROQUEL [Suspect]
     Indication: HALLUCINATION
     Dosage: 25-100 MG
     Route: 048
     Dates: start: 20030418
  11. SEROQUEL [Suspect]
     Dosage: 25-75 MG
     Route: 048
     Dates: start: 20041117, end: 20060526
  12. HYDROCHLOROTHIAZIDE [Concomitant]
     Indication: FLUID IMBALANCE
     Route: 048
     Dates: start: 20040101
  13. SEROQUEL [Suspect]
     Dosage: 25-75 MG
     Route: 048
     Dates: start: 20041117, end: 20060526
  14. MONOPRIL [Concomitant]
     Indication: BLOOD PRESSURE
     Route: 048
     Dates: start: 20060213
  15. HYDROCHLOROTHIAZIDE [Concomitant]
     Dosage: 25 MG  1 TAB QAM AND PM
     Route: 048
     Dates: start: 20060213
  16. GLUCOPHAGE [Concomitant]
     Indication: DIABETES MELLITUS
     Route: 048
     Dates: start: 20040101
  17. SEROQUEL [Suspect]
     Dosage: 25-75 MG
     Route: 048
     Dates: start: 20041117, end: 20060526
  18. HYDROCHLOROTHIAZIDE [Concomitant]
     Dosage: 25 MG  1 TAB QAM AND PM
     Route: 048
     Dates: start: 20060213
  19. DIABETA [Concomitant]
     Indication: DIABETES MELLITUS
     Route: 048
     Dates: start: 20040101
  20. TRAZODONE HYDROCHLORIDE [Concomitant]
     Dates: start: 20030418
  21. MONOPRIL [Concomitant]
     Route: 048
     Dates: start: 20060401
  22. HYDROCHLOROTHIAZIDE [Concomitant]
     Indication: BLOOD PRESSURE
     Route: 048
     Dates: start: 20040101

REACTIONS (2)
  - TYPE 2 DIABETES MELLITUS [None]
  - OBESITY [None]
